FAERS Safety Report 9373941 (Version 2)
Quarter: 2013Q3

REPORT INFORMATION
  Report Type: Spontaneous
  Country: ES (occurrence: ES)
  Receive Date: 20130628
  Receipt Date: 20130726
  Transmission Date: 20140515
  Serious: Yes (Death, Hospitalization, Other)
  Sender: FDA-Public Use
  Company Number: ES-BRISTOL-MYERS SQUIBB COMPANY-19042332

PATIENT
  Age: 85 Year
  Sex: Male

DRUGS (1)
  1. SPRYCEL [Suspect]
     Indication: CHRONIC MYELOID LEUKAEMIA
     Dosage: LAST FOUR YEARS
     Dates: start: 200804, end: 201304

REACTIONS (4)
  - Malignant neoplasm progression [Fatal]
  - Myelodysplastic syndrome [Fatal]
  - Respiratory tract infection [Unknown]
  - Chromosomal mutation [Unknown]
